FAERS Safety Report 7965343-3 (Version None)
Quarter: 2011Q4

REPORT INFORMATION
  Report Type: 
  Country: None (occurrence: None)
  Receive Date: 20111208
  Receipt Date: 20111128
  Transmission Date: 20120403
  Serious: Yes (Other)
  Sender: FDA-Public Use
  Company Number: US-MYLANLABS-2011S1023378

PATIENT
  Age: 15 Year
  Sex: Male
  Weight: 68 kg

DRUGS (7)
  1. FISH OIL [Concomitant]
     Dates: start: 20110721
  2. CLARAVIS [Suspect]
     Indication: ACNE
     Route: 048
     Dates: start: 20110413, end: 20110101
  3. CLARAVIS [Suspect]
     Indication: ACNE CYSTIC
     Route: 048
     Dates: start: 20110413, end: 20110101
  4. AMNESTEEM [Suspect]
     Indication: ACNE
     Route: 048
     Dates: start: 20110101, end: 20110101
  5. AMNESTEEM [Suspect]
     Route: 048
     Dates: start: 20110413, end: 20111009
  6. AMNESTEEM [Suspect]
     Route: 048
     Dates: start: 20110413, end: 20111009
  7. AMNESTEEM [Suspect]
     Indication: ACNE CYSTIC
     Route: 048
     Dates: start: 20110101, end: 20110101

REACTIONS (4)
  - SUICIDAL IDEATION [None]
  - DEPRESSION [None]
  - LIP DRY [None]
  - DRY SKIN [None]
